FAERS Safety Report 16562116 (Version 1)
Quarter: 2019Q3

REPORT INFORMATION
  Report Type: Spontaneous
  Country: BR (occurrence: BR)
  Receive Date: 20190711
  Receipt Date: 20190711
  Transmission Date: 20191004
  Serious: Yes (Other)
  Sender: FDA-Public Use
  Company Number: BR-009507513-1906BRA003159

PATIENT
  Age: 72 Year
  Sex: Female
  Weight: 53 kg

DRUGS (4)
  1. LIMBITROL [Concomitant]
     Active Substance: AMITRIPTYLINE\CHLORDIAZEPOXIDE
     Indication: ANXIETY
     Dosage: 1 TABLET PER NIGHT
  2. ARADOIS [Concomitant]
     Active Substance: LOSARTAN POTASSIUM
     Indication: HYPERTENSION
     Dosage: 50 MG (1 TABLET IN THE MORNING AND 1 TABLET IN THE AFTERNOON)
  3. SIMVASTATIN. [Suspect]
     Active Substance: SIMVASTATIN
     Dosage: UNK
  4. ZETIA [Suspect]
     Active Substance: EZETIMIBE
     Indication: BLOOD CHOLESTEROL INCREASED
     Dosage: 10 MG (1 TABLET PER DAY, BY THE MORNING; ORALLY)
     Route: 048
     Dates: start: 20190602, end: 20190605

REACTIONS (17)
  - Burn oral cavity [Unknown]
  - Sensation of foreign body [Unknown]
  - Throat irritation [Unknown]
  - Dysphagia [Unknown]
  - Abdominal discomfort [Unknown]
  - Hypertension [Recovered/Resolved]
  - Gastrooesophageal reflux disease [Unknown]
  - Anxiety [Unknown]
  - Sleep disorder [Unknown]
  - Pharyngeal swelling [Unknown]
  - Liver disorder [Unknown]
  - Blood cholesterol increased [Unknown]
  - Pharyngeal erythema [Unknown]
  - Stomatitis [Unknown]
  - Balance disorder [Recovering/Resolving]
  - Malaise [Unknown]
  - Dizziness [Recovering/Resolving]

NARRATIVE: CASE EVENT DATE: 201906
